FAERS Safety Report 6693395-X (Version None)
Quarter: 2010Q2

REPORT INFORMATION
  Report Type: 
  Country: None (occurrence: None)
  Receive Date: 20100420
  Receipt Date: 20100413
  Transmission Date: 20101027
  Serious: Yes (Hospitalization)
  Sender: FDA-Public Use
  Company Number: 2009EU000401

PATIENT
  Age: 71 Year
  Sex: Male
  Weight: 72 kg

DRUGS (12)
  1. TACROLIMUS [Suspect]
     Indication: RENAL TRANSPLANT
     Dosage: 7.5 MG, UID/QD, ORAL; 15 MG, BID, ORAL; 03 MG, BID, ORAL
     Route: 048
     Dates: start: 20080927
  2. TACROLIMUS [Suspect]
     Indication: RENAL TRANSPLANT
     Dosage: 7.5 MG, UID/QD, ORAL; 15 MG, BID, ORAL; 03 MG, BID, ORAL
     Route: 048
     Dates: start: 20081213
  3. TACROLIMUS [Suspect]
     Indication: RENAL TRANSPLANT
     Dosage: 7.5 MG, UID/QD, ORAL; 15 MG, BID, ORAL; 03 MG, BID, ORAL
     Route: 048
     Dates: start: 20090302
  4. MYCOPHENOLATE MOFETIL [Suspect]
     Indication: RENAL TRANSPLANT
     Dosage: 1000 MG, ORAL; 2000 MG, ORAL
     Route: 048
     Dates: start: 20080927
  5. MYCOPHENOLATE MOFETIL [Suspect]
     Indication: RENAL TRANSPLANT
     Dosage: 1000 MG, ORAL; 2000 MG, ORAL
     Route: 048
     Dates: start: 20080928
  6. PREDNISOLONE [Suspect]
     Indication: RENAL TRANSPLANT
     Dosage: 500 MG, IV NOS; 125 MG, IV NOS; 20 MG, ORAL
     Route: 042
     Dates: start: 20080927, end: 20080927
  7. PREDNISOLONE [Suspect]
     Indication: RENAL TRANSPLANT
     Dosage: 500 MG, IV NOS; 125 MG, IV NOS; 20 MG, ORAL
     Route: 042
     Dates: start: 20080928, end: 20080928
  8. PREDNISOLONE [Suspect]
     Indication: RENAL TRANSPLANT
     Dosage: 500 MG, IV NOS; 125 MG, IV NOS; 20 MG, ORAL
     Route: 042
     Dates: start: 20080929, end: 20081008
  9. HEPARIN [Concomitant]
  10. VALGANCICLOVIR HCL [Concomitant]
  11. FOSFOMYCIN (FOSFOMYCIN) [Concomitant]
  12. GODAMED (ACETYLSALICYLIC ACID) [Concomitant]

REACTIONS (3)
  - BACTERIAL INFECTION [None]
  - TRANSPLANT FAILURE [None]
  - URINARY TRACT INFECTION [None]
